FAERS Safety Report 9015972 (Version 2)
Quarter: 2013Q1

REPORT INFORMATION
  Report Type: Spontaneous
  Country: US (occurrence: US)
  Receive Date: 20130116
  Receipt Date: 20130214
  Transmission Date: 20140127
  Serious: No
  Sender: FDA-Public Use
  Company Number: PHEH2013US001134

PATIENT
  Sex: Female

DRUGS (9)
  1. TASIGNA [Suspect]
     Indication: CHRONIC MYELOID LEUKAEMIA
     Dosage: 200 MG,
     Route: 048
     Dates: start: 201101
  2. ULTRAM [Concomitant]
     Dosage: 50 MG,
     Route: 048
  3. EXCEDRIN [Concomitant]
     Indication: MIGRAINE
     Route: 048
  4. REGLAN [Concomitant]
     Dosage: 5 MG,
     Route: 048
  5. CARVEDILOL [Concomitant]
     Dosage: 25 MG,
     Route: 048
  6. ZOFRAN [Concomitant]
     Dosage: 4 MG,
     Route: 048
  7. SPIRONOLACTON [Concomitant]
     Dosage: 25 MG,
     Route: 048
  8. OXYCONTIN [Concomitant]
     Dosage: 10 MG,
     Route: 048
  9. PROCHLORPERAZ [Concomitant]
     Dosage: 5 MG,
     Route: 048

REACTIONS (1)
  - Drug ineffective [Unknown]
